FAERS Safety Report 13857386 (Version 1)
Quarter: 2017Q3

REPORT INFORMATION
  Report Type: Other
  Country: None (occurrence: US)
  Receive Date: 20170810
  Receipt Date: 20170810
  Transmission Date: 20171127
  Serious: Yes (Death, Hospitalization)
  Sender: FDA-Public Use
  Company Number: US-LABORATOIRE HRA PHARMA-2024483

PATIENT
  Sex: Male

DRUGS (3)
  1. METOPIRONE [Suspect]
     Active Substance: METYRAPONE
     Indication: CUSHING^S SYNDROME
     Route: 048
  2. CABERGOLINE. [Suspect]
     Active Substance: CABERGOLINE
  3. OCTREOTIDE. [Suspect]
     Active Substance: OCTREOTIDE

REACTIONS (20)
  - Aspiration [None]
  - Neoplasm progression [None]
  - Death [None]
  - Hypoaesthesia [None]
  - Areflexia [None]
  - Hyperglycaemia [None]
  - Fatigue [None]
  - Anosmia [None]
  - Metastases to bone [None]
  - Headache [None]
  - Dysphagia [None]
  - Cortisol free urine increased [None]
  - Blood corticotrophin increased [None]
  - Eye movement disorder [None]
  - Skin hyperpigmentation [None]
  - Muscular weakness [None]
  - Memory impairment [None]
  - Hemianopia [None]
  - Pupillary reflex impaired [None]
  - Back pain [None]
